FAERS Safety Report 23185692 (Version 5)
Quarter: 2024Q4

REPORT INFORMATION
  Report Type: Spontaneous
  Country: CA (occurrence: CA)
  Receive Date: 20231115
  Receipt Date: 20241219
  Transmission Date: 20250114
  Serious: Yes (Hospitalization)
  Sender: ROCHE
  Company Number: CA-ROCHE-3456100

PATIENT
  Age: 80 Year
  Sex: Female

DRUGS (12)
  1. RITUXIMAB [Suspect]
     Active Substance: RITUXIMAB
     Indication: Product used for unknown indication
     Route: 065
  2. ERELZI [Suspect]
     Active Substance: ETANERCEPT-SZZS
     Indication: Ankylosing spondylitis
     Route: 058
  3. ERELZI [Suspect]
     Active Substance: ETANERCEPT-SZZS
     Route: 058
  4. ERELZI [Suspect]
     Active Substance: ETANERCEPT-SZZS
     Route: 058
  5. ERELZI [Suspect]
     Active Substance: ETANERCEPT-SZZS
     Route: 058
  6. DICLOFENAC [Concomitant]
     Active Substance: DICLOFENAC
  7. ENBREL [Concomitant]
     Active Substance: ETANERCEPT
  8. PANTOPRAZOLE [Concomitant]
     Active Substance: PANTOPRAZOLE
  9. BISOPROLOL [Concomitant]
     Active Substance: BISOPROLOL
     Route: 065
  10. ENTRESTO [Concomitant]
     Active Substance: SACUBITRIL\VALSARTAN
     Route: 065
  11. MIRTAZAPINE [Concomitant]
     Active Substance: MIRTAZAPINE
     Route: 065
  12. ZOPICLONE [Concomitant]
     Active Substance: ZOPICLONE
     Route: 065

REACTIONS (38)
  - Arthralgia [Recovered/Resolved]
  - Arthritis [Recovered/Resolved]
  - Asthenia [Recovered/Resolved]
  - Atrioventricular block complete [Recovered/Resolved]
  - Back pain [Recovered/Resolved]
  - Blood pressure decreased [Recovered/Resolved]
  - Blood pressure increased [Recovered/Resolved]
  - Bradycardia [Recovered/Resolved]
  - Contusion [Recovered/Resolved]
  - Cough [Recovered/Resolved]
  - Fall [Unknown]
  - Fatigue [Recovered/Resolved]
  - General physical health deterioration [Recovered/Resolved]
  - Headache [Recovered/Resolved]
  - Heart rate decreased [Recovered/Resolved]
  - Hyperhidrosis [Recovered/Resolved]
  - Hypersensitivity [Recovered/Resolved]
  - Injection site bruising [Recovered/Resolved]
  - Insomnia [Recovered/Resolved]
  - Limb discomfort [Recovered/Resolved]
  - Malaise [Recovered/Resolved]
  - Muscle spasms [Recovered/Resolved]
  - Musculoskeletal stiffness [Recovered/Resolved]
  - Nasopharyngitis [Recovered/Resolved]
  - Nausea [Recovered/Resolved]
  - Oropharyngeal pain [Recovered/Resolved]
  - Pain [Recovered/Resolved]
  - Pallor [Recovered/Resolved]
  - Product dose omission issue [Unknown]
  - Sleep disorder [Recovered/Resolved]
  - Somnolence [Recovered/Resolved]
  - Ulcer [Recovered/Resolved]
  - Eye contusion [Recovered/Resolved]
  - Acute cardiac event [Recovered/Resolved]
  - Loss of consciousness [Recovered/Resolved]
  - Urinary tract infection [Recovered/Resolved]
  - Abdominal discomfort [Recovered/Resolved]
  - Joint range of motion decreased [Recovered/Resolved]
